FAERS Safety Report 16599689 (Version 1)
Quarter: 2019Q3

REPORT INFORMATION
  Report Type: Report from Study
  Country: None (occurrence: US)
  Receive Date: 20190720
  Receipt Date: 20190720
  Transmission Date: 20191004
  Serious: Yes (Hospitalization)
  Sender: FDA-Public Use
  Company Number: US-ABBVIE-19K-163-2857753-00

PATIENT
  Sex: Male

DRUGS (1)
  1. VENCLEXTA [Suspect]
     Active Substance: VENETOCLAX
     Indication: IRON METABOLISM DISORDER
     Dosage: 100 MG, 2 TABLET(S) BY MOUTH
     Route: 048

REACTIONS (2)
  - Transfusion [Unknown]
  - Intentional product use issue [Unknown]
